FAERS Safety Report 14212037 (Version 1)
Quarter: 2017Q4

REPORT INFORMATION
  Report Type: Spontaneous
  Country: US (occurrence: None)
  Receive Date: 20171121
  Receipt Date: 20171121
  Transmission Date: 20180321
  Serious: Yes (Hospitalization)
  Sender: FDA-Public Use
  Company Number: None

PATIENT
  Age: 77 Year
  Sex: Male

DRUGS (39)
  1. TACROLIMUS. [Suspect]
     Active Substance: TACROLIMUS
     Indication: RENAL TRANSPLANT
     Dosage: 6ML Q12H J TUBE
     Dates: start: 20161026
  2. ACCU-CHEK [Concomitant]
  3. ASPIRIN. [Concomitant]
     Active Substance: ASPIRIN
  4. AZITHROMYCIN ANHYDROUS. [Concomitant]
     Active Substance: AZITHROMYCIN ANHYDROUS
  5. VITAMIN C [Concomitant]
     Active Substance: ASCORBIC ACID
  6. AMOX/K CLAV [Concomitant]
     Active Substance: AMOXICILLIN\CLAVULANATE POTASSIUM
  7. BD PEN NEEDL [Concomitant]
  8. BISAC-EVAC [Concomitant]
     Active Substance: BISACODYL
  9. CARAFATE [Concomitant]
     Active Substance: SUCRALFATE
  10. FASTCLIX [Concomitant]
  11. LANTUS [Concomitant]
     Active Substance: INSULIN GLARGINE
  12. NOVOLOG [Concomitant]
     Active Substance: INSULIN ASPART
  13. PILOCARPINE. [Concomitant]
     Active Substance: PILOCARPINE
  14. PREDNISONE. [Concomitant]
     Active Substance: PREDNISONE
  15. SODIUM BICAR [Concomitant]
  16. AMLODIPINE [Concomitant]
     Active Substance: AMLODIPINE BESYLATE
  17. AMOXICILLIN. [Concomitant]
     Active Substance: AMOXICILLIN
  18. FINASTERIDE. [Concomitant]
     Active Substance: FINASTERIDE
  19. INSULIN [Concomitant]
     Active Substance: INSULIN NOS
  20. LATANOPROST. [Concomitant]
     Active Substance: LATANOPROST
  21. LISINOPRIL. [Concomitant]
     Active Substance: LISINOPRIL
  22. OMEPRAZOLE. [Concomitant]
     Active Substance: OMEPRAZOLE
  23. ONDANSETRON [Concomitant]
     Active Substance: ONDANSETRON
  24. TIMOLOL MAL [Concomitant]
  25. FUROSEMIDE. [Concomitant]
     Active Substance: FUROSEMIDE
  26. LANSOPRAZOLE. [Concomitant]
     Active Substance: LANSOPRAZOLE
  27. PROGRAF [Concomitant]
     Active Substance: TACROLIMUS\TACROLIMUS ANHYDROUS
  28. ONETOUCH [Concomitant]
  29. ATOVAQUONE. [Concomitant]
     Active Substance: ATOVAQUONE
  30. DOXAZOSIN [Concomitant]
     Active Substance: DOXAZOSIN\DOXAZOSIN MESYLATE
  31. NATEGLINIDE. [Concomitant]
     Active Substance: NATEGLINIDE
  32. SMZ/TMP [Concomitant]
     Active Substance: SULFAMETHOXAZOLE\TRIMETHOPRIM
  33. SUCRALFATE. [Concomitant]
     Active Substance: SUCRALFATE
  34. FEROSUL [Concomitant]
  35. GABAPENTIN. [Concomitant]
     Active Substance: GABAPENTIN
  36. HYDRALAZINE [Concomitant]
     Active Substance: HYDRALAZINE HYDROCHLORIDE
  37. METOCLOPRAM [Concomitant]
     Active Substance: METOCLOPRAMIDE
  38. NOVOLIN [Concomitant]
     Active Substance: INSULIN HUMAN
  39. VITAMIN D3 [Concomitant]
     Active Substance: CHOLECALCIFEROL

REACTIONS (1)
  - Renal disorder [None]

NARRATIVE: CASE EVENT DATE: 201710
